FAERS Safety Report 7394325-8 (Version None)
Quarter: 2011Q2

REPORT INFORMATION
  Report Type: 
  Country: None (occurrence: None)
  Receive Date: 20110405
  Receipt Date: 20110323
  Transmission Date: 20111010
  Serious: Yes (Life-Threatening)
  Sender: FDA-Public Use
  Company Number: JP-CELGENEUS-087-21880-11032712

PATIENT
  Sex: Female

DRUGS (10)
  1. MUCOSTA [Concomitant]
     Dosage: 300 MILLIGRAM
     Route: 048
     Dates: start: 20110207, end: 20110318
  2. MAGMITT [Concomitant]
     Dosage: 750 MILLIGRAM
     Route: 048
     Dates: start: 20110207, end: 20110318
  3. FLUCONAZOLE [Concomitant]
     Indication: PROPHYLAXIS
     Dosage: 100 MILLIGRAM
     Route: 048
     Dates: start: 20110207, end: 20110318
  4. TAKEPRON [Concomitant]
     Dosage: 15 MILLIGRAM
     Route: 048
     Dates: start: 20110122, end: 20110318
  5. PURSENNID [Concomitant]
     Dosage: 12 MILLIGRAM
     Route: 048
     Dates: start: 20110207, end: 20110318
  6. BAKTAR [Concomitant]
     Indication: PROPHYLAXIS
     Dosage: 1 TABLET
     Route: 048
     Dates: start: 20110207, end: 20110318
  7. ISODINE [Concomitant]
     Indication: PROPHYLAXIS
     Route: 061
     Dates: start: 20110207, end: 20110318
  8. LENADEX [Suspect]
     Indication: MULTIPLE MYELOMA
     Dosage: 20 MILLIGRAM
     Route: 048
     Dates: start: 20110125, end: 20110208
  9. ZANTAC [Concomitant]
     Dosage: 150 MILLIGRAM
     Route: 048
     Dates: start: 20110207, end: 20110221
  10. REVLIMID [Suspect]
     Indication: MULTIPLE MYELOMA
     Dosage: 15 MILLIGRAM
     Route: 048
     Dates: start: 20110125, end: 20110206

REACTIONS (1)
  - MELAENA [None]
